FAERS Safety Report 7864168-7 (Version None)
Quarter: 2011Q4

REPORT INFORMATION
  Report Type: 
  Country: None (occurrence: None)
  Receive Date: 20111028
  Receipt Date: 20111026
  Transmission Date: 20120403
  Serious: Yes (Death, Other)
  Sender: FDA-Public Use
  Company Number: VE-PFIZER INC-2011253957

PATIENT
  Age: 84 Year
  Sex: Female

DRUGS (4)
  1. CONCOR [Concomitant]
     Dosage: UNK
     Route: 048
     Dates: end: 20100101
  2. PLAVIX [Concomitant]
     Dosage: UNK
     Route: 048
     Dates: end: 20100101
  3. LIPITOR [Suspect]
     Dosage: UNKNOWN, ONCE DAILY
     Route: 048
     Dates: start: 20100101, end: 20100101
  4. INSULIN [Concomitant]
     Indication: DIABETES MELLITUS
     Dosage: UNK
     Route: 058
     Dates: end: 20100101

REACTIONS (2)
  - PULMONARY OEDEMA [None]
  - INFARCTION [None]
